FAERS Safety Report 14195592 (Version 1)
Quarter: 2017Q4

REPORT INFORMATION
  Report Type: Spontaneous
  Country: US (occurrence: US)
  Receive Date: 20171116
  Receipt Date: 20171116
  Transmission Date: 20180321
  Serious: No
  Sender: FDA-Public Use
  Company Number: US-COLLEGIUM PHARMACEUTICAL, INC.-2017CGM00084

PATIENT
  Age: 35 Year
  Sex: Female

DRUGS (3)
  1. XTAMPZA ER [Suspect]
     Active Substance: OXYCODONE
     Indication: PAIN
     Dosage: 27 MG, 1X/DAY
  2. XTAMPZA ER [Suspect]
     Active Substance: OXYCODONE
     Dosage: 27 MG, 2X/DAY
  3. UNSPECIFIED SEDATIVES [Suspect]
     Active Substance: UNSPECIFIED INGREDIENT

REACTIONS (6)
  - Insomnia [Not Recovered/Not Resolved]
  - Pain [Not Recovered/Not Resolved]
  - Dysstasia [Not Recovered/Not Resolved]
  - Intentional underdose [Not Recovered/Not Resolved]
  - Intentional product misuse [None]
  - Economic problem [None]
